FAERS Safety Report 16055537 (Version 1)
Quarter: 2019Q1

REPORT INFORMATION
  Report Type: Report from Study
  Country: None (occurrence: CA)
  Receive Date: 20190311
  Receipt Date: 20190311
  Transmission Date: 20190418
  Serious: Yes (Hospitalization)
  Sender: FDA-Public Use
  Company Number: CA-ABBVIE-19K-028-2693170-00

PATIENT
  Age: 24 Year
  Sex: Female

DRUGS (2)
  1. IRON [Concomitant]
     Active Substance: IRON
     Indication: BLOOD IRON DECREASED
     Route: 042
  2. HUMIRA [Suspect]
     Active Substance: ADALIMUMAB
     Indication: COLITIS ULCERATIVE
     Route: 058
     Dates: start: 20181203

REACTIONS (7)
  - Vomiting [Unknown]
  - Haemoptysis [Unknown]
  - Bowel movement irregularity [Unknown]
  - Tonsillar disorder [Not Recovered/Not Resolved]
  - Depression [Unknown]
  - Choking sensation [Unknown]
  - Crying [Unknown]

NARRATIVE: CASE EVENT DATE: 20181203
